FAERS Safety Report 10550988 (Version 1)
Quarter: 2014Q4

REPORT INFORMATION
  Report Type: Spontaneous
  Country: US (occurrence: None)
  Receive Date: 20141020
  Receipt Date: 20141020
  Transmission Date: 20150529
  Serious: No
  Sender: FDA-Public Use
  Company Number: AEGR000709

PATIENT
  Age: 64 Year
  Sex: Female
  Weight: 71.7 kg

DRUGS (9)
  1. JUXTAPID [Suspect]
     Active Substance: LOMITAPIDE MESYLATE
     Indication: TYPE IIA HYPERLIPIDAEMIA
     Route: 048
     Dates: start: 20130612, end: 201310
  2. WELCHOL ( COLESEVELAM HYDROCHLORIDE) [Concomitant]
  3. NIFEDIPINE ( NIFEDIPINE) [Concomitant]
  4. METFORMIN ( METFORMIN HYDROCHLORIDE) [Concomitant]
  5. TEMAZEPAM ( TEMAZEPAM) [Concomitant]
  6. PAXIL ( PAROXETINE HYDROCHLORIDE) [Concomitant]
  7. ASA ( ACETYLSALICYLIC ACID) [Concomitant]
  8. PLAVIX ( CLOPIDOGREL BISULFATE) [Concomitant]
  9. VIT D ( ERGOCALCIFEROL) [Concomitant]

REACTIONS (2)
  - Abdominal pain [None]
  - Diarrhoea [None]

NARRATIVE: CASE EVENT DATE: 20130612
